FAERS Safety Report 6891312-0 (Version None)
Quarter: 2010Q3

REPORT INFORMATION
  Report Type: 
  Country: None (occurrence: None)
  Receive Date: 20100731
  Receipt Date: 20090724
  Transmission Date: 20110219
  Serious: No
  Sender: FDA-Public Use
  Company Number: US-PFIZER INC-2009246464

PATIENT
  Sex: Female

DRUGS (1)
  1. LIPITOR [Suspect]
     Dosage: UNK
     Dates: start: 20090401

REACTIONS (5)
  - ANXIETY [None]
  - DIZZINESS [None]
  - GENERALISED OEDEMA [None]
  - NECK PAIN [None]
  - THROAT TIGHTNESS [None]
